FAERS Safety Report 7141973-6 (Version None)
Quarter: 2010Q4

REPORT INFORMATION
  Report Type: 
  Country: None (occurrence: None)
  Receive Date: 20101207
  Receipt Date: 20101124
  Transmission Date: 20110411
  Serious: Yes (Hospitalization)
  Sender: FDA-Public Use
  Company Number: A0803640A

PATIENT
  Age: 58 Year
  Sex: Male
  Weight: 110 kg

DRUGS (9)
  1. AVANDIA [Suspect]
     Dosage: 4MG TWICE PER DAY
     Route: 048
     Dates: start: 20030101, end: 20060101
  2. AVANDAMET [Suspect]
     Route: 048
  3. METFORMIN [Concomitant]
  4. AMARYL [Concomitant]
  5. LIPITOR [Concomitant]
  6. ATENOLOL [Concomitant]
  7. TRICOR [Concomitant]
  8. QUINAPRIL [Concomitant]
  9. VIAGRA [Concomitant]

REACTIONS (1)
  - MYOCARDIAL INFARCTION [None]
